FAERS Safety Report 12946795 (Version 4)
Quarter: 2016Q4

REPORT INFORMATION
  Report Type: Spontaneous
  Country: KR (occurrence: KR)
  Receive Date: 20161116
  Receipt Date: 20161130
  Transmission Date: 20170207
  Serious: Yes (Death, Hospitalization, Other)
  Sender: FDA-Public Use
  Company Number: KR-009507513-1611KOR006723

PATIENT
  Age: 61 Year
  Sex: Male
  Weight: 69.9 kg

DRUGS (30)
  1. HUMALOG [Concomitant]
     Active Substance: INSULIN LISPRO
     Dosage: 4 IU, QD, CONCENTRAITON: 1000IU/10ML
     Route: 058
     Dates: start: 20161007, end: 20161008
  2. EMEND (FOSAPREPITANT DIMEGLUMINE) [Suspect]
     Active Substance: FOSAPREPITANT DIMEGLUMINE
     Indication: PROPHYLAXIS OF NAUSEA AND VOMITING
     Dosage: 150 MG, ONCE
     Route: 042
     Dates: start: 20161013, end: 20161013
  3. CISPLAN [Concomitant]
     Active Substance: CISPLATIN
     Indication: CHEMOTHERAPY
     Dosage: 90 MG, ONCE
     Route: 042
     Dates: start: 20161013, end: 20161013
  4. GEMZAR [Concomitant]
     Active Substance: GEMCITABINE HYDROCHLORIDE
     Indication: CHEMOTHERAPY
     Dosage: 1260MG, ONCE
     Route: 042
     Dates: start: 20161013, end: 20161013
  5. HUMALOG [Concomitant]
     Active Substance: INSULIN LISPRO
     Indication: DIABETES MELLITUS
     Dosage: 5 IU, TID, CONCENTRATION 100IU/10ML
     Route: 058
     Dates: start: 20160930, end: 20160930
  6. HUMALOG [Concomitant]
     Active Substance: INSULIN LISPRO
     Dosage: 2 IU, ONCE, CONCENTRAITON: 1000IU/10ML
     Route: 058
     Dates: start: 20160930, end: 20160930
  7. MEGACE [Concomitant]
     Active Substance: MEGESTROL ACETATE
     Indication: HYPOPHAGIA
     Dosage: 1 DF, QD
     Route: 048
     Dates: start: 20161012, end: 20161017
  8. SOLONDO [Concomitant]
     Active Substance: PREDNISOLONE
     Indication: PROPHYLAXIS OF NAUSEA AND VOMITING
     Dosage: 1 TABLET, QD
     Route: 048
     Dates: start: 20161011, end: 20161017
  9. ALOXI [Concomitant]
     Active Substance: PALONOSETRON HYDROCHLORIDE
     Indication: PROPHYLAXIS OF NAUSEA AND VOMITING
     Dosage: 0.25 MG, ONCE
     Route: 042
     Dates: start: 20161013, end: 20161013
  10. LANTUS [Concomitant]
     Active Substance: INSULIN GLARGINE
     Indication: DIABETES MELLITUS
     Dosage: 10 IU, ONCE
     Route: 058
     Dates: start: 20160930, end: 20160930
  11. CENTRUM SILVER ADVANCE (LYCOPENE (+) MINERALS (UNSPECIFIED) (+) VITAMI [Concomitant]
     Indication: PROPHYLAXIS
     Dosage: 1 DF, QD
     Route: 048
     Dates: start: 20160930
  12. MEVALOTIN [Concomitant]
     Active Substance: PRAVASTATIN SODIUM
     Indication: HYPERLIPIDAEMIA
     Dosage: 1 TABLET, QD
     Route: 048
     Dates: start: 20160930, end: 20161006
  13. LANTUS [Concomitant]
     Active Substance: INSULIN GLARGINE
     Dosage: 8 IU, ONCE
     Route: 058
     Dates: start: 20161009, end: 20161009
  14. VITAMINS (UNSPECIFIED) [Concomitant]
     Active Substance: VITAMINS
     Indication: PROPHYLAXIS
     Dosage: 5 ML, QD
     Route: 042
     Dates: start: 20161006, end: 20161007
  15. PROAMIN [Concomitant]
     Indication: HYPOPHAGIA
     Dosage: 500 ML, QD
     Route: 042
     Dates: start: 20161006, end: 20161007
  16. DEXAMETHASONE SODIUM PHOSPHATE. [Concomitant]
     Active Substance: DEXAMETHASONE SODIUM PHOSPHATE
     Indication: PROPHYLAXIS OF NAUSEA AND VOMITING
     Dosage: 12 MG, ONCE
     Route: 042
     Dates: start: 20161013, end: 20161013
  17. DEXAMETHASONE SODIUM PHOSPHATE. [Concomitant]
     Active Substance: DEXAMETHASONE SODIUM PHOSPHATE
     Dosage: 8 MG, QD
     Route: 042
     Dates: start: 20161014, end: 20161016
  18. HUMALOG [Concomitant]
     Active Substance: INSULIN LISPRO
     Dosage: 14 IU, ONCE, CONCENTRAITON: 1000IU/10ML
     Route: 058
     Dates: start: 20161013, end: 20161013
  19. LANSTON [Concomitant]
     Active Substance: LANSOPRAZOLE
     Indication: PROPHYLAXIS
     Dosage: 15 MG, QD
     Route: 048
     Dates: start: 20161013, end: 20161016
  20. TAMSULOSIN HYDROCHLORIDE. [Concomitant]
     Active Substance: TAMSULOSIN HYDROCHLORIDE
     Indication: METASTASES TO PROSTATE
     Dosage: 0.2 MG, QD
     Route: 048
     Dates: start: 20160611
  21. HUMALOG [Concomitant]
     Active Substance: INSULIN LISPRO
     Dosage: 2 IU, ONCE, CONCENTRAITON: 1000IU/10ML
     Route: 058
     Dates: start: 20161011, end: 20161011
  22. HUMALOG [Concomitant]
     Active Substance: INSULIN LISPRO
     Dosage: 3 IU, ONCE, CONCENTRAITON: 1000IU/10ML
     Route: 058
     Dates: start: 20161012, end: 20161012
  23. SMOFKABIVEN [Concomitant]
     Active Substance: UNSPECIFIED INGREDIENT
     Indication: HYPOPHAGIA
     Dosage: 1448 ML, ONCE
     Route: 042
     Dates: start: 20161009, end: 20161009
  24. SMOFKABIVEN [Concomitant]
     Active Substance: UNSPECIFIED INGREDIENT
     Dosage: 1477 ML, ONCE
     Route: 042
     Dates: start: 20161011, end: 20161011
  25. NUTRIFLEX [Concomitant]
     Active Substance: AMINO ACIDS\CARBOHYDRATES\ELECTROLYTES NOS
     Indication: HYPOPHAGIA
     Dosage: 1250 ML, ONCE
     Route: 042
     Dates: start: 20160929, end: 20160929
  26. GEMZAR [Concomitant]
     Active Substance: GEMCITABINE HYDROCHLORIDE
     Dosage: 1430 MG, ONCE
     Route: 042
     Dates: start: 20160929, end: 20160929
  27. LANTUS [Concomitant]
     Active Substance: INSULIN GLARGINE
     Dosage: 10 IU, ONCE
     Route: 058
     Dates: start: 20161006, end: 20161006
  28. LANTUS [Concomitant]
     Active Substance: INSULIN GLARGINE
     Dosage: 10 IU, ONCE
     Route: 058
     Dates: start: 20161010, end: 20161010
  29. HUMALOG [Concomitant]
     Active Substance: INSULIN LISPRO
     Dosage: 10 IU, ONCE, CONCENTRAITON: 1000IU/10ML
     Route: 058
     Dates: start: 20160929, end: 20160929
  30. CILOSTAZOL. [Concomitant]
     Active Substance: CILOSTAZOL
     Indication: CEREBRAL INFARCTION
     Dosage: 100 MG, QD
     Route: 048
     Dates: start: 20161007

REACTIONS (10)
  - Diarrhoea [Recovered/Resolved]
  - Drug ineffective [Unknown]
  - Hepatic failure [Fatal]
  - Ascites [Not Recovered/Not Resolved]
  - Hypomagnesaemia [Recovered/Resolved]
  - Diarrhoea [Recovered/Resolved]
  - Portal vein thrombosis [Not Recovered/Not Resolved]
  - Weight increased [Recovered/Resolved]
  - Abdominal pain [Recovered/Resolved]
  - Hypokalaemia [Recovered/Resolved]

NARRATIVE: CASE EVENT DATE: 20161013
